FAERS Safety Report 12922820 (Version 1)
Quarter: 2016Q4

REPORT INFORMATION
  Report Type: Spontaneous
  Country: RU (occurrence: RU)
  Receive Date: 20161109
  Receipt Date: 20161109
  Transmission Date: 20170207
  Serious: Yes (Other)
  Sender: FDA-Public Use
  Company Number: RU-ASTRAZENECA-2016SF16540

PATIENT
  Age: 61 Year
  Sex: Female
  Weight: 63 kg

DRUGS (8)
  1. BETALOC [Concomitant]
     Active Substance: METOPROLOL TARTRATE
  2. BRILINTA [Suspect]
     Active Substance: TICAGRELOR
     Indication: ACUTE CORONARY SYNDROME
     Route: 048
     Dates: start: 201606
  3. LIPRIMAR [Concomitant]
     Active Substance: ATORVASTATIN CALCIUM
  4. DIUVER [Concomitant]
     Active Substance: TORSEMIDE
  5. AKONSIA [Concomitant]
  6. SIRDALUD [Concomitant]
     Active Substance: TIZANIDINE
  7. THROMBO ASS [Concomitant]
     Active Substance: ASPIRIN
  8. AMLODIPINE [Concomitant]
     Active Substance: AMLODIPINE BESYLATE

REACTIONS (3)
  - Osteochondrosis [Not Recovered/Not Resolved]
  - Thyroid disorder [Not Recovered/Not Resolved]
  - Blood pressure increased [Not Recovered/Not Resolved]

NARRATIVE: CASE EVENT DATE: 2016
